FAERS Safety Report 9512549 (Version 1)
Quarter: 2013Q1

REPORT INFORMATION
  Report Type: Spontaneous
  Country: US (occurrence: None)
  Receive Date: 20130305
  Receipt Date: 20130305
  Transmission Date: 20140127
  Serious: Yes (Other)
  Sender: FDA-Public Use
  Company Number: 163-21880-12051747

PATIENT
  Age: 72 Year
  Sex: Female

DRUGS (15)
  1. REVLIMID (LENALIDOMIDE) (CAPSULES) [Suspect]
     Indication: PLASMA CELL MYELOMA
     Dosage: 28 IN 28 D
     Route: 048
     Dates: start: 20120418, end: 20120712
  2. ALPRAZOLAM (ALPRAZOLAM) (UNKNOWN) (ALPRAZOLAM) [Concomitant]
  3. DEXAMETHASONE (DEXAMETHASONE) (UNKNOWN) [Concomitant]
  4. LOSARTAN (LOSARTAN) (UNKNOWN) [Concomitant]
  5. POTASSIUM (POTASSIUM) (UNKNOWN) [Concomitant]
  6. CALCIUM (CALCIUM) (UNKNOWN) [Concomitant]
  7. CYMBALTA (DULOXETINE HYDROCHLORIDE) (UNKNOWN) [Concomitant]
  8. METFORMIN HCL (METFORMIN HYDROCHLORIDE) (UNKNOWN) [Concomitant]
  9. METOPROLOL SUCCINATE (METOPROLOL SUCCINATE) (UNKNOWN) [Concomitant]
  10. OMEPRAZOLE (OMEPRAZOLE) (UNKNOWN) [Concomitant]
  11. IMDUR (ISOSORBIDE MONONITRATE) (UNKNOWN) [Concomitant]
  12. BYSTOLIC (NEBIVOLOL HYDROCHLORIDE) (UNKNOWN) [Concomitant]
  13. NITROGLYCERIN (GLYCERYL TRINITRATE) (UNKNOWN) [Concomitant]
  14. DOXYCYCLINE HYCLATE (DOXYCYCLINE HYCLATE (UNKNOWN) [Concomitant]
  15. GLUCOPHAGE (METFORMIN HYDROCHLORIDE) (UNKNOWN) [Concomitant]

REACTIONS (5)
  - Chest pain [None]
  - Feeling hot [None]
  - Night sweats [None]
  - Headache [None]
  - Fatigue [None]
